FAERS Safety Report 5222925-X (Version None)
Quarter: 2007Q1

REPORT INFORMATION
  Report Type: 
  Country: None (occurrence: None)
  Receive Date: 20070129
  Receipt Date: 20070122
  Transmission Date: 20070707
  Serious: Yes (Hospitalization, Other)
  Sender: FDA-Public Use
  Company Number: US-PFIZER INC-2006001341

PATIENT
  Sex: Female
  Weight: 95.3 kg

DRUGS (9)
  1. BEXTRA [Suspect]
     Indication: NECK PAIN
     Route: 048
  2. VIOXX [Concomitant]
  3. ADVIL [Concomitant]
  4. CELEBREX [Concomitant]
  5. DEMEROL [Concomitant]
  6. CODEINE [Concomitant]
  7. MORPHINE [Concomitant]
  8. OXYCONTIN [Concomitant]
  9. PERCOCET [Concomitant]

REACTIONS (4)
  - ANKLE FRACTURE [None]
  - CEREBROVASCULAR ACCIDENT [None]
  - HEADACHE [None]
  - LOSS OF CONSCIOUSNESS [None]
